FAERS Safety Report 16423399 (Version 2)
Quarter: 2019Q2

REPORT INFORMATION
  Report Type: Spontaneous
  Country: US (occurrence: US)
  Receive Date: 20190612
  Receipt Date: 20190618
  Transmission Date: 20190711
  Serious: No
  Sender: FDA-Public Use
  Company Number: US-CELGENEUS-USA-20190602208

PATIENT
  Sex: Female

DRUGS (6)
  1. OTEZLA [Suspect]
     Active Substance: APREMILAST
     Indication: PALMOPLANTAR PUSTULOSIS
     Dosage: TITRATION PACK
     Route: 048
     Dates: start: 20190227
  2. OTEZLA [Suspect]
     Active Substance: APREMILAST
     Dosage: 80 MILLIGRAM
     Route: 048
     Dates: start: 2019
  3. OTEZLA [Suspect]
     Active Substance: APREMILAST
     Indication: PSORIASIS
     Dosage: 60 MILLIGRAM
     Route: 048
     Dates: start: 20190322
  4. CLOBETASOL [Concomitant]
     Active Substance: CLOBETASOL
     Indication: SEBORRHOEIC DERMATITIS
     Route: 061
  5. ENSTILAR [Concomitant]
     Active Substance: BETAMETHASONE DIPROPIONATE\CALCIPOTRIENE HYDRATE
     Indication: PSORIASIS
     Route: 061
  6. EUCRISA [Concomitant]
     Active Substance: CRISABOROLE
     Indication: PSORIASIS
     Route: 061

REACTIONS (2)
  - Diarrhoea [Recovered/Resolved]
  - Psoriasis [Recovered/Resolved]

NARRATIVE: CASE EVENT DATE: 2019
